FAERS Safety Report 6980262-7 (Version None)
Quarter: 2010Q3

REPORT INFORMATION
  Report Type: 
  Country: None (occurrence: None)
  Receive Date: 20100914
  Receipt Date: 20100901
  Transmission Date: 20110219
  Serious: Yes (Hospitalization)
  Sender: FDA-Public Use
  Company Number: US-ELI_LILLY_AND_COMPANY-US201009002246

PATIENT
  Sex: Female

DRUGS (4)
  1. STRATTERA [Suspect]
     Dosage: 80 MG, DAILY (1/D)
  2. CYMBALTA [Suspect]
     Indication: DEPRESSION
     Dosage: 90 MG, DAILY (1/D)
  3. NUVIGIL [Concomitant]
  4. TOPAMAX [Concomitant]

REACTIONS (1)
  - INTESTINAL OBSTRUCTION [None]
